FAERS Safety Report 7317387-2 (Version None)
Quarter: 2011Q1

REPORT INFORMATION
  Report Type: 
  Country: None (occurrence: None)
  Receive Date: 20110226
  Receipt Date: 20101207
  Transmission Date: 20110831
  Serious: No
  Sender: FDA-Public Use
  Company Number: US-ALLERGAN-1014033US

PATIENT
  Age: 65 Year
  Sex: Male
  Weight: 87.982 kg

DRUGS (6)
  1. INDOMETHACIN [Concomitant]
     Indication: GOUT
     Dosage: UNK
     Route: 048
     Dates: start: 20100720
  2. BOTOXA? [Suspect]
     Dosage: UNK
     Dates: start: 20091112, end: 20091112
  3. BOTOXA? [Suspect]
     Indication: FACIAL SPASM
     Dosage: 20 UNITS, SINGLE
     Route: 030
     Dates: start: 20100617, end: 20100617
  4. BOTOXA? [Suspect]
     Dosage: UNK
     Dates: start: 20100413, end: 20100413
  5. ASPIRIN [Concomitant]
     Indication: MYALGIA
     Dosage: 325 MG, PRN
     Route: 048
  6. BOTOXA? [Suspect]
     Dosage: UNK
     Dates: start: 20090519, end: 20090519

REACTIONS (1)
  - EYELID OEDEMA [None]
